FAERS Safety Report 6543960-5 (Version None)
Quarter: 2010Q1

REPORT INFORMATION
  Report Type: 
  Country: None (occurrence: None)
  Receive Date: 20100120
  Receipt Date: 20100107
  Transmission Date: 20100710
  Serious: Yes (Hospitalization)
  Sender: FDA-Public Use
  Company Number: DE-PFIZER INC-2009297129

PATIENT
  Sex: Male

DRUGS (6)
  1. SUNITINIB MALATE [Suspect]
     Indication: HEPATIC NEOPLASM MALIGNANT
     Dosage: 37.5 MG, 1X/DAY
     Route: 048
     Dates: start: 20090826, end: 20091112
  2. SPIRONOLACTONE [Concomitant]
     Dosage: 100 MG, 1X/DAY
  3. TORASEMIDE [Concomitant]
     Dosage: 10 MG, 3X/DAY
  4. ALLOPURINOL [Concomitant]
     Dosage: 150 MG, 1X/DAY
  5. PANTOPRAZOLE [Concomitant]
     Dosage: 40 MG, 1X/DAY
  6. AMLODIPINE [Concomitant]
     Dosage: 10 MG, 1X/DAY

REACTIONS (2)
  - ASCITES [None]
  - RENAL FAILURE [None]
